FAERS Safety Report 6213725-2 (Version None)
Quarter: 2009Q2

REPORT INFORMATION
  Report Type: 
  Country: None (occurrence: None)
  Receive Date: 20090602
  Receipt Date: 20090520
  Transmission Date: 20091009
  Serious: Yes (Hospitalization, Other)
  Sender: FDA-Public Use
  Company Number: CHPA2009US12082

PATIENT
  Sex: Female

DRUGS (5)
  1. MAALOX MS TOTAL STOMACH RELIEF [Suspect]
     Dosage: 2 TIMES A DAY, ORAL
     Route: 048
     Dates: start: 20090517, end: 20090517
  2. FLUDROCORTISONE ACETATE [Concomitant]
  3. PREDNISONE TAB [Concomitant]
  4. STEROIDS NOS               (NO INGREDIENTS/SUBSTANCES) [Concomitant]
  5. LORTAB [Concomitant]

REACTIONS (9)
  - AMNIOTIC FLUID VOLUME DECREASED [None]
  - BLOOD PH DECREASED [None]
  - DEAFNESS [None]
  - DRUG EXPOSURE DURING PREGNANCY [None]
  - ERYTHEMA [None]
  - FATIGUE [None]
  - HEART RATE INCREASED [None]
  - LIVER DISORDER [None]
  - OVERDOSE [None]
